FAERS Safety Report 4698046-1 (Version None)
Quarter: 2005Q2

REPORT INFORMATION
  Report Type: 
  Country: None (occurrence: None)
  Receive Date: 20050623
  Receipt Date: 20050518
  Transmission Date: 20051028
  Serious: Yes (Death, Life-Threatening)
  Sender: FDA-Public Use
  Company Number: DE-BRISTOL-MYERS SQUIBB COMPANY-12975983

PATIENT
  Age: 29 Year
  Sex: Female

DRUGS (4)
  1. ABILIFY [Suspect]
     Indication: SCHIZOPHRENIA
     Route: 048
     Dates: start: 20050330, end: 20050512
  2. ABILIFY [Suspect]
     Indication: DEPRESSION
     Route: 048
     Dates: start: 20050330, end: 20050512
  3. FLUOXETINE [Concomitant]
     Indication: DEPRESSION
     Dates: start: 20040401, end: 20050512
  4. CONTRACEPTIVE [Concomitant]

REACTIONS (5)
  - CIRCULATORY COLLAPSE [None]
  - CONVULSION [None]
  - DYSPNOEA [None]
  - PULMONARY EMBOLISM [None]
  - SHOCK [None]
